FAERS Safety Report 18641169 (Version 1)
Quarter: 2020Q4

REPORT INFORMATION
  Report Type: Spontaneous
  Country: FR (occurrence: FR)
  Receive Date: 20201221
  Receipt Date: 20201221
  Transmission Date: 20210114
  Serious: Yes (Hospitalization)
  Sender: FDA-Public Use
  Company Number: FR-JNJFOC-20201225448

PATIENT
  Age: 1 Day
  Sex: Male
  Weight: 3.54 kg

DRUGS (2)
  1. HALDOL DECANOAS [Suspect]
     Active Substance: HALOPERIDOL DECANOATE
     Indication: BIPOLAR DISORDER
     Route: 064
     Dates: start: 20200228, end: 20201123
  2. LEPTICUR [Suspect]
     Active Substance: TROPATEPINE HYDROCHLORIDE
     Indication: BIPOLAR DISORDER
     Route: 064
     Dates: start: 20200228, end: 20201123

REACTIONS (4)
  - Intestinal obstruction [Recovered/Resolved]
  - Pneumoperitoneum [Recovered/Resolved]
  - Intestinal perforation [Recovered/Resolved]
  - Septic shock [Recovered/Resolved]

NARRATIVE: CASE EVENT DATE: 20201124
